FAERS Safety Report 19141658 (Version 4)
Quarter: 2022Q1

REPORT INFORMATION
  Report Type: Spontaneous
  Country: PL (occurrence: PL)
  Receive Date: 20210415
  Receipt Date: 20220222
  Transmission Date: 20220423
  Serious: Yes (Hospitalization, Other)
  Sender: FDA-Public Use
  Company Number: PL-SA-SAC20210416001451

PATIENT
  Age: 46 Year
  Sex: Male

DRUGS (18)
  1. ATORVASTATIN [Suspect]
     Active Substance: ATORVASTATIN
     Indication: Cardiac failure chronic
     Dosage: 1 DF,QD
     Route: 065
  2. TORSEMIDE [Suspect]
     Active Substance: TORSEMIDE
     Indication: Cardiac failure chronic
     Dosage: 20 MG,QD
     Route: 065
  3. ASPIRIN [Suspect]
     Active Substance: ASPIRIN
     Indication: Cardiac failure chronic
     Dosage: 1 DF,QD
     Route: 065
  4. RAMIPRIL [Suspect]
     Active Substance: RAMIPRIL
     Indication: Cardiac failure chronic
     Dosage: 1 DF,QD
     Route: 065
  5. EPLERENONE [Suspect]
     Active Substance: EPLERENONE
     Indication: Cardiac failure chronic
     Dosage: 1 DF,QD
     Route: 065
  6. EPLERENONE [Suspect]
     Active Substance: EPLERENONE
     Dosage: 1 DOSAGE FORM, QD
     Route: 065
  7. ENTRESTO [Suspect]
     Active Substance: SACUBITRIL\VALSARTAN
     Indication: Cardiac failure chronic
     Dosage: 2DF (OF 24/26MG)
     Route: 065
     Dates: start: 20191128
  8. ENTRESTO [Suspect]
     Active Substance: SACUBITRIL\VALSARTAN
     Dosage: 2 DF,(OF 24/26MG)
     Route: 065
  9. ENTRESTO [Suspect]
     Active Substance: SACUBITRIL\VALSARTAN
     Dosage: 1 DF, Q12H
     Route: 065
  10. IVABRADINE [Suspect]
     Active Substance: IVABRADINE
     Indication: Cardiac failure chronic
     Dosage: 1 DF, Q12H
     Route: 065
  11. IVABRADINE [Suspect]
     Active Substance: IVABRADINE
     Dosage: 1 DOSAGE FORM, QD
     Route: 065
  12. IVABRADINE [Suspect]
     Active Substance: IVABRADINE
     Dosage: 5 DF, Q12H
     Route: 065
  13. ROSUVASTATIN [Suspect]
     Active Substance: ROSUVASTATIN
     Indication: Cardiac failure chronic
     Dosage: 1 DF
     Route: 065
  14. ROSUVASTATIN [Suspect]
     Active Substance: ROSUVASTATIN
     Dosage: 1 DF,QD
     Route: 065
  15. COREG [Suspect]
     Active Substance: CARVEDILOL
     Indication: Cardiac failure chronic
     Dosage: 2 DF,QD
     Route: 065
  16. COREG [Suspect]
     Active Substance: CARVEDILOL
     Dosage: 1 DF, Q12H
     Route: 065
  17. CARVEDILOL [Suspect]
     Active Substance: CARVEDILOL
     Indication: Cardiac failure chronic
     Dosage: 2 DF
     Route: 065
  18. CARVEDILOL [Suspect]
     Active Substance: CARVEDILOL
     Dosage: 1 DF, Q12H
     Route: 065

REACTIONS (8)
  - Cardiac failure [Recovered/Resolved]
  - Overdose [Unknown]
  - Electrocardiogram abnormal [Unknown]
  - Cardiac failure [Recovered/Resolved]
  - Bradycardia [Unknown]
  - Feeling abnormal [Unknown]
  - Hypotension [Unknown]
  - Computerised tomogram coronary artery abnormal [Unknown]

NARRATIVE: CASE EVENT DATE: 20190522
